FAERS Safety Report 12714576 (Version 1)
Quarter: 2016Q3

REPORT INFORMATION
  Report Type: Report from Study
  Country: FR (occurrence: FR)
  Receive Date: 20160905
  Receipt Date: 20160905
  Transmission Date: 20161109
  Serious: Yes (Hospitalization)
  Sender: FDA-Public Use
  Company Number: FR-ROCHE-1824380

PATIENT
  Sex: Male

DRUGS (16)
  1. RITUXIMAB [Suspect]
     Active Substance: RITUXIMAB
     Dosage: C3D1
     Route: 041
     Dates: start: 20100810
  2. RITUXIMAB [Suspect]
     Active Substance: RITUXIMAB
     Dosage: C3D15
     Route: 041
     Dates: start: 20100824
  3. RITUXIMAB [Suspect]
     Active Substance: RITUXIMAB
     Dosage: C7D1
     Route: 041
     Dates: start: 20130910
  4. CORTANCYL [Concomitant]
     Active Substance: PREDNISONE
     Route: 065
  5. RITUXIMAB [Suspect]
     Active Substance: RITUXIMAB
     Dosage: C1D15
     Route: 041
     Dates: start: 20080428
  6. RITUXIMAB [Suspect]
     Active Substance: RITUXIMAB
     Dosage: C2D1
     Route: 041
     Dates: start: 20090512
  7. RITUXIMAB [Suspect]
     Active Substance: RITUXIMAB
     Dosage: C2D15
     Route: 041
     Dates: start: 20090526
  8. RITUXIMAB [Suspect]
     Active Substance: RITUXIMAB
     Dosage: C4D15
     Route: 041
     Dates: start: 20110622
  9. RITUXIMAB [Suspect]
     Active Substance: RITUXIMAB
     Dosage: C5D15
     Route: 041
     Dates: start: 20120809
  10. RITUXIMAB [Suspect]
     Active Substance: RITUXIMAB
     Dosage: C6D1
     Route: 041
     Dates: start: 20130212
  11. RITUXIMAB [Suspect]
     Active Substance: RITUXIMAB
     Dosage: C7D15
     Route: 041
     Dates: start: 20130925
  12. RITUXIMAB [Suspect]
     Active Substance: RITUXIMAB
     Dosage: C5D1
     Route: 041
     Dates: start: 20120726
  13. CORTANCYL [Concomitant]
     Active Substance: PREDNISONE
     Route: 065
  14. RITUXIMAB [Suspect]
     Active Substance: RITUXIMAB
     Indication: RHEUMATOID ARTHRITIS
     Dosage: C1D1
     Route: 041
     Dates: start: 20080415
  15. RITUXIMAB [Suspect]
     Active Substance: RITUXIMAB
     Dosage: C4D1
     Route: 041
     Dates: start: 20110503
  16. RITUXIMAB [Suspect]
     Active Substance: RITUXIMAB
     Dosage: C6D15
     Route: 041
     Dates: start: 20130226

REACTIONS (5)
  - Cataract [Recovered/Resolved]
  - Lung infection [Recovered/Resolved]
  - Pneumonia [Recovered/Resolved]
  - Foot deformity [Recovered/Resolved]
  - Lung infection [Recovered/Resolved]

NARRATIVE: CASE EVENT DATE: 20080915
